FAERS Safety Report 7955343-1 (Version None)
Quarter: 2011Q4

REPORT INFORMATION
  Report Type: 
  Country: None (occurrence: None)
  Receive Date: 20111202
  Receipt Date: 20111121
  Transmission Date: 20120403
  Serious: No
  Sender: FDA-Public Use
  Company Number: US-ELI_LILLY_AND_COMPANY-US201109004800

PATIENT
  Sex: Female
  Weight: 69.31 kg

DRUGS (1)
  1. FORTEO [Suspect]
     Dosage: UNK, UNKNOWN
     Route: 065
     Dates: start: 20110907

REACTIONS (4)
  - NAUSEA [None]
  - BONE PAIN [None]
  - IRRITABLE BOWEL SYNDROME [None]
  - DIZZINESS [None]
